FAERS Safety Report 5339501-0 (Version None)
Quarter: 2007Q2

REPORT INFORMATION
  Report Type: 
  Country: None (occurrence: None)
  Receive Date: 20070525
  Receipt Date: 20070521
  Transmission Date: 20071010
  Serious: Yes (Hospitalization)
  Sender: FDA-Public Use
  Company Number: THQ2007A00411

PATIENT
  Age: 87 Year
  Sex: Male

DRUGS (1)
  1. LEUPROLIDE ACETATE [Suspect]
     Dosage: UNK SUBCUTANEOUS
     Route: 058
     Dates: start: 20010101

REACTIONS (7)
  - DEPRESSION [None]
  - ERECTILE DYSFUNCTION [None]
  - FATIGUE [None]
  - MEMORY IMPAIRMENT [None]
  - MENINGITIS [None]
  - POLLAKIURIA [None]
  - URINARY INCONTINENCE [None]
